FAERS Safety Report 8507932-3 (Version None)
Quarter: 2012Q3

REPORT INFORMATION
  Report Type: 
  Country: None (occurrence: None)
  Receive Date: 20120709
  Receipt Date: 20120709
  Transmission Date: 20120928
  Serious: Yes (Other)
  Sender: FDA-Public Use
  Company Number: None

PATIENT
  Age: 65 Year
  Sex: Female
  Weight: 112.9457 kg

DRUGS (2)
  1. CRESTOR [Suspect]
     Indication: HYPERLIPIDAEMIA
     Dosage: 1 TABLET DAILY PO
     Route: 048
     Dates: start: 20120607, end: 20120630
  2. SIMVASTATIN [Suspect]
     Dosage: 1 TABLET DAILY PO
     Route: 048
     Dates: start: 20111118, end: 20120514

REACTIONS (8)
  - MENTAL IMPAIRMENT [None]
  - MYALGIA [None]
  - ATRIAL FIBRILLATION [None]
  - FATIGUE [None]
  - HEART RATE IRREGULAR [None]
  - MUSCULAR WEAKNESS [None]
  - ARTHRALGIA [None]
  - DYSPNOEA [None]
